FAERS Safety Report 5119134-1 (Version None)
Quarter: 2006Q3

REPORT INFORMATION
  Report Type: 
  Country: None (occurrence: None)
  Receive Date: 20060929
  Receipt Date: 20060929
  Transmission Date: 20061208
  Serious: Yes (Other)
  Sender: FDA-Public Use
  Company Number: None

PATIENT
  Age: 54 Year
  Sex: Female
  Weight: 106.5953 kg

DRUGS (1)
  1. LEVAQUIN [Suspect]
     Indication: VIRAL INFECTION
     Dosage: 1 TABLET DAILY
     Dates: start: 20060920, end: 20060927

REACTIONS (8)
  - ARTHRALGIA [None]
  - BACK PAIN [None]
  - FEELING JITTERY [None]
  - GAIT DISTURBANCE [None]
  - INSOMNIA [None]
  - MUSCULOSKELETAL PAIN [None]
  - NERVOUSNESS [None]
  - TENDON DISORDER [None]
